FAERS Safety Report 13676986 (Version 4)
Quarter: 2017Q4

REPORT INFORMATION
  Report Type: Spontaneous
  Country: JP (occurrence: JP)
  Receive Date: 20170622
  Receipt Date: 20171031
  Transmission Date: 20180320
  Serious: Yes (Other)
  Sender: FDA-Public Use
  Company Number: JP-ROCHE-1954125

PATIENT
  Age: 78 Year
  Sex: Female

DRUGS (16)
  1. LUCENTIS [Suspect]
     Active Substance: RANIBIZUMAB
     Route: 031
     Dates: start: 201510
  2. EYLEA [Concomitant]
     Active Substance: AFLIBERCEPT
     Route: 065
     Dates: start: 201608
  3. EYLEA [Concomitant]
     Active Substance: AFLIBERCEPT
     Route: 065
     Dates: start: 201606
  4. EYLEA [Concomitant]
     Active Substance: AFLIBERCEPT
     Route: 065
     Dates: start: 201609
  5. EYLEA [Concomitant]
     Active Substance: AFLIBERCEPT
     Route: 065
     Dates: start: 201612
  6. LUCENTIS [Suspect]
     Active Substance: RANIBIZUMAB
     Indication: DIABETIC RETINAL OEDEMA
     Route: 031
     Dates: start: 201505
  7. EYLEA [Concomitant]
     Active Substance: AFLIBERCEPT
     Route: 065
     Dates: start: 201610
  8. EYLEA [Concomitant]
     Active Substance: AFLIBERCEPT
     Route: 065
     Dates: start: 201604
  9. LUCENTIS [Suspect]
     Active Substance: RANIBIZUMAB
     Route: 031
     Dates: start: 201507
  10. EYLEA [Concomitant]
     Active Substance: AFLIBERCEPT
     Route: 065
     Dates: start: 201611
  11. EYLEA [Concomitant]
     Active Substance: AFLIBERCEPT
     Route: 065
     Dates: start: 201701
  12. LUCENTIS [Suspect]
     Active Substance: RANIBIZUMAB
     Route: 031
     Dates: start: 201511, end: 201511
  13. EYLEA [Concomitant]
     Active Substance: AFLIBERCEPT
     Route: 065
     Dates: start: 201605
  14. EYLEA [Concomitant]
     Active Substance: AFLIBERCEPT
     Route: 065
     Dates: start: 201702
  15. EYLEA [Concomitant]
     Active Substance: AFLIBERCEPT
     Route: 065
     Dates: start: 201704
  16. EYLEA [Concomitant]
     Active Substance: AFLIBERCEPT
     Route: 065
     Dates: start: 201705

REACTIONS (2)
  - Disease progression [Unknown]
  - Cataract [Unknown]
